FAERS Safety Report 17938178 (Version 2)
Quarter: 2020Q3

REPORT INFORMATION
  Report Type: Spontaneous
  Country: PT (occurrence: PT)
  Receive Date: 20200624
  Receipt Date: 20200709
  Transmission Date: 20201103
  Serious: Yes (Other)
  Sender: FDA-Public Use
  Company Number: PT-MYLANLABS-2020M1057301

PATIENT
  Age: 41 Year
  Sex: Female

DRUGS (19)
  1. RIBAVIRIN. [Suspect]
     Active Substance: RIBAVIRIN
     Indication: ANTIRETROVIRAL THERAPY
     Dosage: 100 UNK
     Dates: start: 2005, end: 2006
  2. RIBAVIRIN. [Suspect]
     Active Substance: RIBAVIRIN
     Dosage: CAPS 2005?2005 2005?2008
     Dates: start: 2006, end: 2008
  3. TENOFOVIR DISOPROXIL [Suspect]
     Active Substance: TENOFOVIR DISOPROXIL
     Indication: ANTIRETROVIRAL THERAPY
     Dosage: 2005?UNK JUL10?UNK
     Dates: start: 20050710
  4. SAQUINAVIR [Suspect]
     Active Substance: SAQUINAVIR
     Indication: ANTIRETROVIRAL THERAPY
     Dosage: JUL07?08 JUL10?UNK
     Dates: start: 200707, end: 2008
  5. NEVIRAPINE. [Suspect]
     Active Substance: NEVIRAPINE
     Indication: PRODUCT USED FOR UNKNOWN INDICATION
     Dosage: UNK
     Dates: start: 2003, end: 2005
  6. RITONAVIR. [Suspect]
     Active Substance: RITONAVIR
     Indication: PRODUCT USED FOR UNKNOWN INDICATION
     Dosage: 2005?06 2006?UNK
     Dates: start: 2005, end: 2005
  7. INDINAVIR [Suspect]
     Active Substance: INDINAVIR
     Dosage: UNK
     Dates: start: 2006
  8. PEGINTRON [Suspect]
     Active Substance: PEGINTERFERON ALFA-2B
     Indication: PRODUCT USED FOR UNKNOWN INDICATION
     Dosage: UNK
     Dates: start: 2005, end: 2006
  9. TENOFOVIR DISOPROXIL [Suspect]
     Active Substance: TENOFOVIR DISOPROXIL
     Dosage: UNK
     Dates: start: 201007
  10. SAQUINAVIR [Suspect]
     Active Substance: SAQUINAVIR
     Dosage: UNK
     Dates: start: 201007
  11. ABACAVIR. [Suspect]
     Active Substance: ABACAVIR
     Dosage: 2005?2008,JUL10?UNK
     Dates: start: 2005, end: 2008
  12. LOPINAVIR/RITONAVIR [Suspect]
     Active Substance: LOPINAVIR\RITONAVIR
     Indication: PRODUCT USED FOR UNKNOWN INDICATION
     Dosage: 100 MG
     Dates: start: 2005, end: 2005
  13. PEGASYS [Suspect]
     Active Substance: PEGINTERFERON ALFA-2A
     Indication: PRODUCT USED FOR UNKNOWN INDICATION
     Dosage: UNK
     Dates: start: 200804, end: 200805
  14. ABACAVIR. [Suspect]
     Active Substance: ABACAVIR
     Indication: ANTIRETROVIRAL THERAPY
     Dosage: 2005?2008,JUL10?UNK
     Dates: start: 20050710, end: 2008
  15. LAMIVUDINE. [Suspect]
     Active Substance: LAMIVUDINE
     Indication: ANTIRETROVIRAL THERAPY
     Dosage: UNK
     Dates: start: 2003, end: 2005
  16. INDINAVIR [Suspect]
     Active Substance: INDINAVIR
     Indication: ANTIRETROVIRAL THERAPY
     Dosage: UNK
     Dates: start: 2005, end: 2006
  17. ZIDOVUDINE. [Suspect]
     Active Substance: ZIDOVUDINE
     Indication: ANTIRETROVIRAL THERAPY
     Dosage: 2003?2005 2005?2005
     Dates: start: 2003, end: 2005
  18. ABACAVIR. [Suspect]
     Active Substance: ABACAVIR
     Dosage: UNK
     Dates: start: 201007
  19. EFAVIRENZ. [Suspect]
     Active Substance: EFAVIRENZ
     Indication: ANTIRETROVIRAL THERAPY
     Dosage: UNK
     Dates: start: 2003

REACTIONS (7)
  - Vomiting [Unknown]
  - Drug resistance [Unknown]
  - Fatigue [Unknown]
  - Nausea [Unknown]
  - Hepatic cirrhosis [Unknown]
  - Hypertension [Unknown]
  - Drug intolerance [Unknown]

NARRATIVE: CASE EVENT DATE: 2005
